FAERS Safety Report 19906743 (Version 2)
Quarter: 2021Q4

REPORT INFORMATION
  Report Type: Report from Study
  Country: JP (occurrence: JP)
  Receive Date: 20210930
  Receipt Date: 20211013
  Transmission Date: 20220304
  Serious: Yes (Other)
  Sender: FDA-Public Use
  Company Number: NVSJ2021JP014235

PATIENT
  Age: 72 Year
  Sex: Female
  Weight: 43 kg

DRUGS (1)
  1. MEKINIST [Suspect]
     Active Substance: TRAMETINIB DIMETHYL SULFOXIDE
     Indication: Product used for unknown indication
     Dosage: 2 MG, QD
     Route: 048
     Dates: start: 20210127, end: 20210203

REACTIONS (2)
  - Malignant neoplasm progression [Unknown]
  - Ascites [Not Recovered/Not Resolved]

NARRATIVE: CASE EVENT DATE: 20210127
